FAERS Safety Report 12243959 (Version 1)
Quarter: 2016Q2

REPORT INFORMATION
  Report Type: Report from Study
  Country: SI (occurrence: SI)
  Receive Date: 20160406
  Receipt Date: 20160406
  Transmission Date: 20160815
  Serious: Yes (Death)
  Sender: FDA-Public Use
  Company Number: SI-ASTRAZENECA-2016SE36064

PATIENT
  Age: 879 Month
  Sex: Male
  Weight: 80 kg

DRUGS (3)
  1. ASA [Suspect]
     Active Substance: ASPIRIN
     Indication: ACUTE CORONARY SYNDROME
     Route: 048
  2. BRILIQUE [Suspect]
     Active Substance: TICAGRELOR
     Indication: CARDIOVASCULAR EVENT PROPHYLAXIS
     Dosage: LOADING DOSE 180 MG ONCE
     Route: 048
  3. BRILIQUE [Suspect]
     Active Substance: TICAGRELOR
     Indication: CARDIOVASCULAR EVENT PROPHYLAXIS
     Route: 048
     Dates: end: 20160311

REACTIONS (1)
  - Vascular stent thrombosis [Fatal]

NARRATIVE: CASE EVENT DATE: 20160312
